FAERS Safety Report 8760588 (Version 2)
Quarter: 2013Q1

REPORT INFORMATION
  Report Type: Spontaneous
  Country: FI (occurrence: None)
  Receive Date: 20120820
  Receipt Date: 20121226
  Transmission Date: 20140127
  Serious: Yes (Life-Threatening, Hospitalization, Disabling)
  Sender: FDA-Public Use
  Company Number: 2012FI0253

PATIENT
  Age: 75 Year
  Sex: Male

DRUGS (12)
  1. KINERET [Suspect]
     Indication: JUVENILE IDIOPATHIC ARTHRITIS
     Dosage: (100 MG, 1 IN 1 D)
     Route: 058
     Dates: start: 20120605, end: 20020610
  2. PRIMASPAN (ACETYLSALICYSLIC ACID)(100 MILLIGRAM, GASTRO-RESISTANT TABLET) [Concomitant]
  3. PREDNISOLON (PREDNISOLON)(20 MILLIGRAM, TABLETS) [Concomitant]
  4. PROTAPHANE PENFILL (HUMAN INSULIN)(100 IU (INTERNATIONAL UNIT), SUSPENSION FOR INJECTION) [Concomitant]
  5. DIFORMIN RETARD (METFORMIN)(500 MILLIGRAM, PROLONGED-RELEASE TABLET) [Concomitant]
  6. AZAMUN (AZATHIOPRIN)(50 MILLIGRAM, FILM-COATED TABLET) [Concomitant]
  7. PRONAXEN (NAPROXEN)(500 MILLIGRAM, TABLETS) [Concomitant]
  8. PARAMAX FORTE (PARACETAMOL)(TABLETS) [Concomitant]
  9. TRAMAL (TRAMADOL)(50 MILLIGRAM, CAPSULE, HARD) [Concomitant]
  10. BISOPROLOL RATIONPHARM (BISOPROLOL)(5 MILLIGRAM, TABLETS) [Concomitant]
  11. THYROXIN (LEVOTHYROXIN)(0,1 MILLIGRAM, TABLETS [Concomitant]
  12. NOVORAPID FLEXPEN (INSULIN ASPARTATE)(100 IU (INTERNATIONAL UNIT), SOLUTION FOR INJECTION IN PRE-FILLED PEN) [Concomitant]

REACTIONS (13)
  - Renal necrosis [None]
  - Face oedema [None]
  - Rash [None]
  - Confusional state [None]
  - Anuria [None]
  - Streptococcal infection [None]
  - Staphylococcal infection [None]
  - Stomatitis necrotising [None]
  - Leukopenia [None]
  - Thrombocytopenia [None]
  - Anaemia [None]
  - Haemodialysis [None]
  - Transaminases increased [None]
